FAERS Safety Report 6998082-6 (Version None)
Quarter: 2010Q3

REPORT INFORMATION
  Report Type: 
  Country: None (occurrence: None)
  Receive Date: 20100920
  Receipt Date: 20100907
  Transmission Date: 20110219
  Serious: Yes (Hospitalization)
  Sender: FDA-Public Use
  Company Number: US-ELI_LILLY_AND_COMPANY-US201009003156

PATIENT
  Age: 48 Year
  Sex: Female
  Weight: 73.424 kg

DRUGS (4)
  1. GEMZAR [Suspect]
     Indication: RENAL CELL CARCINOMA
     Dosage: 90 MG, OTHER
     Route: 042
     Dates: start: 20100811
  2. AXITINIB [Concomitant]
     Indication: METASTATIC RENAL CELL CARCINOMA
     Dosage: 10 MG, 2/D
     Route: 048
     Dates: start: 20100216, end: 20100725
  3. DOXORUBICIN HCL [Concomitant]
     Indication: RENAL CELL CARCINOMA
     Dosage: 2680 MG, UNK
     Route: 042
     Dates: start: 20100811
  4. NEULASTA [Concomitant]
     Dosage: 6 MG, UNK
     Route: 058
     Dates: start: 20100813

REACTIONS (3)
  - DEHYDRATION [None]
  - NEUTROPENIA [None]
  - OFF LABEL USE [None]
